FAERS Safety Report 8427166-0 (Version None)
Quarter: 2012Q2

REPORT INFORMATION
  Report Type: 
  Country: None (occurrence: None)
  Receive Date: 20120611
  Receipt Date: 20120529
  Transmission Date: 20120825
  Serious: Yes (Hospitalization)
  Sender: FDA-Public Use
  Company Number: DE-VERTEX PHARMACEUTICALS INC.-000000000000000816

PATIENT
  Age: 57 Year
  Sex: Female

DRUGS (10)
  1. METOPROLOL TARTRATE AND HYDROCHLOROTHIAZIDE [Concomitant]
     Dosage: DOSAGE FORM: UNSPECIFIED
     Route: 065
  2. TELAPREVIR [Suspect]
     Indication: PRODUCT USED FOR UNKNOWN INDICATION
     Dosage: DOSAGE FORM: TABLET
     Route: 048
  3. ALDACTONE [Concomitant]
     Dosage: DOSAGE FORM: UNSPECIFIED
     Route: 065
  4. PEGASYS [Concomitant]
     Indication: PRODUCT USED FOR UNKNOWN INDICATION
     Dosage: DOSAGE FORM: INJECTION
     Route: 058
  5. COPEGUS [Concomitant]
     Indication: PRODUCT USED FOR UNKNOWN INDICATION
     Dosage: DOSAGE FORM: UNSPECIFIED
     Route: 048
  6. TORSEMIDE [Concomitant]
     Dosage: DOSAGE FORM: UNSPECIFIED
     Route: 065
  7. PEGASYS [Concomitant]
     Dosage: DOSAGE FORM: INJECTION
     Route: 058
     Dates: start: 20120106
  8. COPEGUS [Concomitant]
     Dosage: DOSAGE FORM: UNSPECIFIED
     Route: 048
     Dates: start: 20120106
  9. RAMIPRIL [Concomitant]
     Dosage: DOSAGE FORM: UNSPECIFIED
     Route: 065
  10. TELAPREVIR [Suspect]
     Dosage: DOSAGE FORM: TABLET
     Route: 048
     Dates: start: 20120106

REACTIONS (2)
  - ULCER [None]
  - ERYSIPELAS [None]
